FAERS Safety Report 16518202 (Version 8)
Quarter: 2022Q1

REPORT INFORMATION
  Report Type: Spontaneous
  Country: US (occurrence: US)
  Receive Date: 20190702
  Receipt Date: 20220228
  Transmission Date: 20220423
  Serious: No
  Sender: FDA-Public Use
  Company Number: US-PFIZER INC-2019282781

PATIENT
  Age: 71 Year
  Sex: Female

DRUGS (4)
  1. SOMAVERT [Suspect]
     Active Substance: PEGVISOMANT
     Indication: Acromegaly
     Dosage: 10 MG, DAILY
     Route: 058
     Dates: start: 20190518
  2. SOMAVERT [Suspect]
     Active Substance: PEGVISOMANT
     Dosage: 15 MG, DAILY
     Route: 048
     Dates: start: 20190519, end: 20200512
  3. SOMAVERT [Suspect]
     Active Substance: PEGVISOMANT
     Dosage: 20 MG, DAILY
     Route: 048
     Dates: start: 20190519
  4. SOMAVERT [Suspect]
     Active Substance: PEGVISOMANT
     Dosage: 20 MG, DAILY
     Route: 058
     Dates: start: 20200530

REACTIONS (6)
  - Product prescribing error [Unknown]
  - Nausea [Unknown]
  - Feeling hot [Unknown]
  - Insulin-like growth factor increased [Unknown]
  - Lethargy [Unknown]
  - Insulin-like growth factor abnormal [Recovered/Resolved]

NARRATIVE: CASE EVENT DATE: 20190101
